FAERS Safety Report 6722346-4 (Version None)
Quarter: 2010Q2

REPORT INFORMATION
  Report Type: 
  Country: None (occurrence: None)
  Receive Date: 20100512
  Receipt Date: 20100503
  Transmission Date: 20101027
  Serious: Yes (Hospitalization)
  Sender: FDA-Public Use
  Company Number: DZ-GENENTECH-301387

PATIENT
  Age: 59 Year
  Sex: Female

DRUGS (1)
  1. MABTHERA [Suspect]
     Indication: RHEUMATOID ARTHRITIS
     Dosage: 1000 MG, QAM
     Route: 042
     Dates: start: 20100330, end: 20100330

REACTIONS (1)
  - RHEUMATOID ARTHRITIS [None]
